FAERS Safety Report 9559754 (Version 1)
Quarter: 2013Q3

REPORT INFORMATION
  Report Type: Spontaneous
  Country: US (occurrence: US)
  Receive Date: 20130927
  Receipt Date: 20130927
  Transmission Date: 20140515
  Serious: Yes (Other)
  Sender: FDA-Public Use
  Company Number: US-BAYER-2013-112871

PATIENT
  Age: 67 Year
  Sex: Female

DRUGS (1)
  1. CIPRO [Suspect]
     Indication: URINARY TRACT INFECTION
     Dosage: 500 MG, BID
     Route: 048
     Dates: start: 20121217

REACTIONS (5)
  - Heart rate increased [None]
  - Heart rate irregular [None]
  - Headache [None]
  - Heart rate increased [None]
  - Heart rate increased [None]
